FAERS Safety Report 12544477 (Version 3)
Quarter: 2016Q4

REPORT INFORMATION
  Report Type: Spontaneous
  Country: US (occurrence: US)
  Receive Date: 20160711
  Receipt Date: 20161107
  Transmission Date: 20170207
  Serious: No
  Sender: FDA-Public Use
  Company Number: US-PFIZER INC-2016318779

PATIENT
  Age: 53 Year
  Sex: Male

DRUGS (2)
  1. SUTENT [Suspect]
     Active Substance: SUNITINIB MALATE
     Dosage: 12.5 MG, CYCLIC, (DAILY FOR 4 WEEKS, THEN OFF 2 WEEKS)
     Route: 048
     Dates: start: 20160215
  2. SUTENT [Suspect]
     Active Substance: SUNITINIB MALATE
     Indication: RENAL CANCER
     Dosage: 25 MG, DAILY (FOR 28 DAYS)
     Route: 048
     Dates: start: 20160216

REACTIONS (5)
  - Facial pain [Unknown]
  - Fatigue [Unknown]
  - Decreased appetite [Unknown]
  - Headache [Unknown]
  - Oral pain [Unknown]

NARRATIVE: CASE EVENT DATE: 20160624
